FAERS Safety Report 4404212-2 (Version None)
Quarter: 2004Q3

REPORT INFORMATION
  Report Type: 
  Country: None (occurrence: None)
  Receive Date: 20040721
  Receipt Date: 20040721
  Transmission Date: 20050211
  Serious: No
  Sender: FDA-Public Use
  Company Number: None

PATIENT
  Age: 84 Year
  Sex: Male
  Weight: 68.9 kg

DRUGS (18)
  1. CILASTATIN/IMIPENEM [Suspect]
     Indication: OSTEOMYELITIS
     Dosage: 250 MGIV
     Route: 042
     Dates: start: 20040218, end: 20040303
  2. METRONIDAZOLE [Concomitant]
  3. ACETAMINOPHEN [Concomitant]
  4. LISINOPRIL [Concomitant]
  5. INSULIN [Concomitant]
  6. OMEPRAZOLE [Concomitant]
  7. MULTI-VITAMIN [Concomitant]
  8. ENOXAPARIN [Concomitant]
  9. HUMULIN R [Concomitant]
  10. SILVER SULFADIAZINE [Concomitant]
  11. ACETAMINOPHEN AND HYDROCODONE BITARTRATE [Concomitant]
  12. PAPAIN/UREA (ACCUZYME) [Concomitant]
  13. HEPARIN [Concomitant]
  14. INSULIN REG [Concomitant]
  15. HYDROCHLOROTHIAZIDE [Concomitant]
  16. VANCOMYCIN [Concomitant]
  17. CILASTATIN/IMIPENEM [Concomitant]
  18. TOBRAMYCIN [Concomitant]

REACTIONS (1)
  - BACTERIA STOOL IDENTIFIED [None]
